FAERS Safety Report 21991882 (Version 3)
Quarter: 2023Q2

REPORT INFORMATION
  Report Type: Report from Study
  Country: US (occurrence: US)
  Receive Date: 20230214
  Receipt Date: 20230608
  Transmission Date: 20230721
  Serious: No
  Sender: FDA-Public Use
  Company Number: US-LUNDBECK-DKLU3058059

PATIENT
  Age: 48 Year
  Sex: Male

DRUGS (1)
  1. VYEPTI [Suspect]
     Active Substance: EPTINEZUMAB-JJMR
     Indication: Migraine
     Route: 041
     Dates: start: 20230203

REACTIONS (6)
  - Pruritus [Unknown]
  - Therapeutic product effect delayed [Unknown]
  - Upper respiratory tract infection [Unknown]
  - Headache [Unknown]
  - Therapeutic response decreased [Unknown]
  - Drug ineffective [Unknown]
